FAERS Safety Report 9054937 (Version 4)
Quarter: 2013Q3

REPORT INFORMATION
  Report Type: Report from Study
  Country: US (occurrence: US)
  Receive Date: 20130208
  Receipt Date: 20130807
  Transmission Date: 20140515
  Serious: Yes (Hospitalization)
  Sender: FDA-Public Use
  Company Number: US-US-EMD SERONO, INC.-7191435

PATIENT
  Age: 56 Year
  Sex: Female

DRUGS (3)
  1. REBIF [Suspect]
     Indication: MULTIPLE SCLEROSIS
     Route: 058
     Dates: start: 20070404
  2. LAMICTAL XR [Concomitant]
     Indication: EPILEPSY
     Route: 048
  3. KEPPRA XR [Concomitant]
     Indication: EPILEPSY

REACTIONS (12)
  - Dehydration [Recovered/Resolved]
  - Seizure cluster [Recovered/Resolved]
  - Anticonvulsant drug level below therapeutic [Recovered/Resolved]
  - Fall [Recovering/Resolving]
  - Laceration [Recovering/Resolving]
  - Foot fracture [Not Recovered/Not Resolved]
  - Burning sensation [Unknown]
  - Hernia [Unknown]
  - Hypoaesthesia [Unknown]
  - Injection site erythema [Not Recovered/Not Resolved]
  - Injection site pain [Unknown]
  - Injection site nodule [Unknown]
